FAERS Safety Report 9317296 (Version 1)
Quarter: 2013Q2

REPORT INFORMATION
  Report Type: Report from Study
  Country: CA (occurrence: CA)
  Receive Date: 20130530
  Receipt Date: 20130530
  Transmission Date: 20140414
  Serious: Yes (Other)
  Sender: FDA-Public Use
  Company Number: CA-JNJFOC-20130519969

PATIENT
  Age: 41 Year
  Sex: Male
  Weight: 95 kg

DRUGS (3)
  1. REMICADE [Suspect]
     Indication: CROHN^S DISEASE
     Route: 042
     Dates: start: 201112
  2. LOMOTIL [Concomitant]
     Route: 065
  3. MAXERAN [Concomitant]
     Route: 065

REACTIONS (2)
  - Gastroenteritis [Recovered/Resolved]
  - Crohn^s disease [Not Recovered/Not Resolved]
